FAERS Safety Report 5399970-7 (Version None)
Quarter: 2007Q3

REPORT INFORMATION
  Report Type: 
  Country: None (occurrence: None)
  Receive Date: 20070725
  Receipt Date: 20070709
  Transmission Date: 20080115
  Serious: Yes (Life-Threatening, Hospitalization, Disabling)
  Sender: FDA-Public Use
  Company Number: S07-UKI-01380-01

PATIENT
  Age: 39 Year
  Sex: Female

DRUGS (4)
  1. CITALOPRAM HYDROBROMIDE [Suspect]
     Indication: DEPRESSION
  2. SUMATRIPTAN SUCCINATE [Suspect]
     Indication: MIGRAINE
     Dosage: 50 MG ONCE PO
     Route: 048
     Dates: start: 20070202, end: 20070202
  3. IMODIUM [Concomitant]
  4. MICROGYNON [Concomitant]

REACTIONS (11)
  - ABASIA [None]
  - ANAPHYLACTIC SHOCK [None]
  - CHEST PAIN [None]
  - CIRCULATORY COLLAPSE [None]
  - DRUG INTERACTION [None]
  - DYSPNOEA [None]
  - GASTROENTERITIS [None]
  - HYPERHIDROSIS [None]
  - MALAISE [None]
  - PHOTOPHOBIA [None]
  - THROAT TIGHTNESS [None]
